FAERS Safety Report 5166270-X (Version None)
Quarter: 2006Q4

REPORT INFORMATION
  Report Type: 
  Country: None (occurrence: None)
  Receive Date: 20060830
  Receipt Date: 20060603
  Transmission Date: 20070319
  Serious: No
  Sender: FDA-Public Use
  Company Number: 214756

PATIENT
  Age: 28 Year
  Sex: Female

DRUGS (10)
  1. XOLAIR [Suspect]
     Indication: ASTHMA
     Dosage: 300 MG, Q4W, SUBCUTANEOUS
     Route: 058
     Dates: start: 20031209
  2. ZYRTEC [Concomitant]
  3. NEXIUM [Concomitant]
  4. EFFEXOR [Concomitant]
  5. WELLBUTRIN (BUPRIPION HYDROCHLORIDE) [Concomitant]
  6. ALBUTEROL (ALBUTEROL/ALBUTEROL SULFATE) [Concomitant]
  7. ADVAIR DISKUS 100/50 [Concomitant]
  8. PROZAC [Concomitant]
  9. PRENATAL VITAMINS (MINERALS NOS, MULTIVITAMINS NOS) [Concomitant]
  10. SINGULAIR [Concomitant]

REACTIONS (1)
  - DRUG EXPOSURE DURING PREGNANCY [None]
